FAERS Safety Report 17387083 (Version 2)
Quarter: 2020Q3

REPORT INFORMATION
  Report Type: Report from Study
  Country: US (occurrence: US)
  Receive Date: 20200206
  Receipt Date: 20200716
  Transmission Date: 20201102
  Serious: Yes (Other)
  Sender: FDA-Public Use
  Company Number: US-BAUSCH-BL-2020-002529

PATIENT
  Age: 67 Year
  Sex: Female
  Weight: 79.18 kg

DRUGS (16)
  1. ALLOPURINOL. [Concomitant]
     Active Substance: ALLOPURINOL
  2. TYLENOL [Concomitant]
     Active Substance: ACETAMINOPHEN
     Indication: ARTHRALGIA
     Dosage: AS NEEDED
     Route: 048
  3. GABAPENTIN. [Concomitant]
     Active Substance: GABAPENTIN
     Indication: PRODUCT USED FOR UNKNOWN INDICATION
  4. ALLOPURINOL. [Concomitant]
     Active Substance: ALLOPURINOL
     Indication: BLOOD URIC ACID INCREASED
  5. SYNTHROID [Concomitant]
     Active Substance: LEVOTHYROXINE SODIUM
     Indication: HYPERTHYROIDISM
     Route: 048
  6. PREDNISONE. [Concomitant]
     Active Substance: PREDNISONE
     Indication: CHRONIC OBSTRUCTIVE PULMONARY DISEASE
     Route: 048
  7. CELLCEPT [Concomitant]
     Active Substance: MYCOPHENOLATE MOFETIL\MYCOPHENOLATE MOFETIL HYDROCHLORIDE
     Dosage: DECREASE THE DOSE TO 1000 MG BID FOR 3 MONTHS THEN GRADUALLY GO DOWN
  8. LASIX [Concomitant]
     Active Substance: FUROSEMIDE
     Indication: HYPERTENSION
  9. PREDNISONE. [Concomitant]
     Active Substance: PREDNISONE
     Indication: DERMATITIS CONTACT
  10. APRISO [Suspect]
     Active Substance: MESALAMINE
     Indication: CROHN^S DISEASE
     Dosage: 4 CAPSULES DAILY
     Route: 048
     Dates: start: 2016
  11. FERROUS SULFATE. [Concomitant]
     Active Substance: FERROUS SULFATE
     Indication: IRON DEFICIENCY ANAEMIA
  12. LIALDA [Concomitant]
     Active Substance: MESALAMINE
     Indication: TYPE V HYPERLIPIDAEMIA
     Route: 048
  13. APRISO [Suspect]
     Active Substance: MESALAMINE
     Indication: PRODUCT USE IN UNAPPROVED INDICATION
  14. AZITHROMYCIN ANHYDROUS. [Concomitant]
     Active Substance: AZITHROMYCIN ANHYDROUS
     Indication: ACUTE SINUSITIS
     Dosage: 2 TABLETS ON THE FIRST DAY
     Route: 048
  15. AZITHROMYCIN ANHYDROUS. [Concomitant]
     Active Substance: AZITHROMYCIN ANHYDROUS
     Dosage: ONE TABLET FOR 4 DAYS
     Route: 048
  16. CELLCEPT [Concomitant]
     Active Substance: MYCOPHENOLATE MOFETIL\MYCOPHENOLATE MOFETIL HYDROCHLORIDE
     Indication: GLOMERULONEPHRITIS MEMBRANOUS
     Dosage: SHE HAD BEEN ON IT FOR CLOSE TO 2 YEARS
     Dates: start: 201312

REACTIONS (5)
  - Hyperuricaemia [Not Recovered/Not Resolved]
  - Gastrooesophageal reflux disease [Recovering/Resolving]
  - Crohn^s disease [Unknown]
  - Product use in unapproved indication [Unknown]
  - Hyperlipidaemia [Unknown]

NARRATIVE: CASE EVENT DATE: 2016
